FAERS Safety Report 6408427-3 (Version None)
Quarter: 2009Q4

REPORT INFORMATION
  Report Type: 
  Country: None (occurrence: None)
  Receive Date: 20091019
  Receipt Date: 20091006
  Transmission Date: 20100525
  Serious: Yes (Congenital Anomaly)
  Sender: FDA-Public Use
  Company Number: 2009US000579

PATIENT
  Sex: Male
  Weight: 3.1 kg

DRUGS (4)
  1. PROGRAF [Suspect]
     Indication: DRUG EXPOSURE DURING PREGNANCY
     Dosage: 9 MG, UID/QD, ORAL
     Route: 048
  2. PREDNISONE TAB [Concomitant]
  3. INSULIN (INSULIN) [Concomitant]
  4. PRENATAL VITAMINS (TOCOPHEROL, NICOTINIC ACID, VITAMIN D NOS, MINERALS [Concomitant]

REACTIONS (5)
  - CONGENITAL ECTOPIC BLADDER [None]
  - DEAFNESS [None]
  - INCONTINENCE [None]
  - LEARNING DISABILITY [None]
  - MATERNAL DRUGS AFFECTING FOETUS [None]
